FAERS Safety Report 8134635-X (Version None)
Quarter: 2012Q1

REPORT INFORMATION
  Report Type: 
  Country: None (occurrence: None)
  Receive Date: 20120214
  Receipt Date: 20120211
  Transmission Date: 20120608
  Serious: Yes (Other)
  Sender: FDA-Public Use
  Company Number: US-PFIZER INC-2012037882

PATIENT
  Sex: Female
  Weight: 68 kg

DRUGS (7)
  1. CALCIUM [Concomitant]
     Dosage: UNK
  2. VITAMIN D [Concomitant]
     Indication: VITAMIN D DEFICIENCY
     Dosage: UNK
  3. VITAMIN A [Concomitant]
     Indication: INTESTINAL OPERATION
     Dosage: UNK
  4. MOTRIN [Concomitant]
     Indication: OSTEOARTHRITIS
     Dosage: 800 MG, UNK
  5. ASCORBIC ACID [Concomitant]
     Indication: FOOD ALLERGY
     Dosage: UNK
  6. FLECTOR [Suspect]
     Indication: MUSCULOSKELETAL PAIN
     Dosage: UNKNOWN DOSE, AS NEEDED
     Route: 061
     Dates: start: 20080901
  7. LEVOTHYROXINE [Concomitant]
     Indication: THYROID DISORDER
     Dosage: UNK

REACTIONS (3)
  - BARRETT'S OESOPHAGUS [None]
  - ULCER [None]
  - PHARYNGEAL POLYP [None]
